FAERS Safety Report 4834110-1 (Version None)
Quarter: 2005Q4

REPORT INFORMATION
  Report Type: 
  Country: None (occurrence: None)
  Receive Date: 20051122
  Receipt Date: 20051116
  Transmission Date: 20060501
  Serious: Yes (Hospitalization)
  Sender: FDA-Public Use
  Company Number: CH-AVENTIS-200520109GDDC

PATIENT
  Age: 85 Year
  Sex: Male

DRUGS (5)
  1. FLAGYL [Suspect]
     Route: 048
     Dates: start: 20050701, end: 20051004
  2. TAVANIC [Suspect]
     Route: 048
     Dates: start: 20050901, end: 20050901
  3. PODOMEXEF [Suspect]
     Route: 048
     Dates: start: 20050701, end: 20051004
  4. PANTOZOL [Concomitant]
     Route: 048
  5. DOSPIR [Concomitant]
     Route: 055

REACTIONS (4)
  - COORDINATION ABNORMAL [None]
  - DYSARTHRIA [None]
  - FALL [None]
  - GAIT DISTURBANCE [None]
